FAERS Safety Report 16336123 (Version 2)
Quarter: 2019Q2

REPORT INFORMATION
  Report Type: Report from Study
  Country: US (occurrence: US)
  Receive Date: 20190521
  Receipt Date: 20190522
  Transmission Date: 20190711
  Serious: Yes (Hospitalization)
  Sender: FDA-Public Use
  Company Number: US-BAUSCH-BL-2019-014734

PATIENT
  Age: 69 Year
  Sex: Male

DRUGS (1)
  1. SILIQ [Suspect]
     Active Substance: BRODALUMAB
     Indication: PRODUCT USED FOR UNKNOWN INDICATION
     Dosage: INJECT 210 MG EVERY OTHER WEEK
     Route: 065

REACTIONS (1)
  - Road traffic accident [Recovering/Resolving]

NARRATIVE: CASE EVENT DATE: 20190421
